FAERS Safety Report 7423368-0 (Version None)
Quarter: 2011Q2

REPORT INFORMATION
  Report Type: 
  Country: None (occurrence: None)
  Receive Date: 20110419
  Receipt Date: 20110406
  Transmission Date: 20111010
  Serious: Yes (Hospitalization)
  Sender: FDA-Public Use
  Company Number: PHHY2010MX46622

PATIENT
  Age: 73 Year
  Sex: Female

DRUGS (2)
  1. ACLASTA [Suspect]
     Indication: OSTEOPENIA
     Dosage: ONE INJECTION (5 MG/100ML) PER YEAR,
     Route: 042
     Dates: start: 20090731
  2. NOVOTIRAL [Concomitant]

REACTIONS (1)
  - SPINAL DISORDER [None]
